FAERS Safety Report 13805958 (Version 1)
Quarter: 2017Q3

REPORT INFORMATION
  Report Type: Spontaneous
  Country: JP (occurrence: JP)
  Receive Date: 20170728
  Receipt Date: 20170728
  Transmission Date: 20171127
  Serious: Yes (Other)
  Sender: FDA-Public Use
  Company Number: JP-009507513-1707JPN011807

PATIENT
  Age: 2 Month
  Sex: Male

DRUGS (6)
  1. NITROUS OXIDE. [Concomitant]
     Active Substance: NITROUS OXIDE
     Indication: INDUCTION OF ANAESTHESIA
     Dosage: UNK
  2. FENTANYL. [Concomitant]
     Active Substance: FENTANYL
     Dosage: 10 MICROGRAM, UNK
     Route: 042
  3. SEVOFLURANE. [Concomitant]
     Active Substance: SEVOFLURANE
     Indication: INDUCTION OF ANAESTHESIA
  4. OXYGEN. [Concomitant]
     Active Substance: OXYGEN
     Indication: INDUCTION OF ANAESTHESIA
     Dosage: UNK
  5. ROCURONIUM BROMIDE. [Suspect]
     Active Substance: ROCURONIUM BROMIDE
     Dosage: 4 MG, ONCE
     Route: 042
  6. ATROPINE. [Concomitant]
     Active Substance: ATROPINE
     Dosage: 0.05 MG, UNK
     Route: 042

REACTIONS (2)
  - Diaphragmatic paralysis [Unknown]
  - Diaphragmatic abnormal relaxation [Unknown]
